FAERS Safety Report 10250359 (Version 1)
Quarter: 2014Q2

REPORT INFORMATION
  Report Type: Spontaneous
  Country: KZ (occurrence: KZ)
  Receive Date: 20140620
  Receipt Date: 20140620
  Transmission Date: 20141212
  Serious: Yes (Death, Other)
  Sender: FDA-Public Use
  Company Number: KZ-GLAXOSMITHKLINE-B1005480A

PATIENT
  Age: 19 Year
  Sex: Female

DRUGS (1)
  1. BENLYSTA [Suspect]
     Indication: SYSTEMIC LUPUS ERYTHEMATOSUS
     Dosage: 690MG PER DAY
     Route: 042
     Dates: start: 201308, end: 20140523

REACTIONS (2)
  - Pancreatitis acute [Fatal]
  - Hypovolaemic shock [Fatal]
